FAERS Safety Report 9274619 (Version 3)
Quarter: 2013Q4

REPORT INFORMATION
  Report Type: Spontaneous
  Country: FR (occurrence: FR)
  Receive Date: 20130507
  Receipt Date: 20131002
  Transmission Date: 20140711
  Serious: Yes (Other)
  Sender: FDA-Public Use
  Company Number: FR-009507513-1302FRA008607

PATIENT
  Age: 32 Year
  Sex: Female
  Weight: 60 kg

DRUGS (4)
  1. PUREGON [Suspect]
     Indication: OVULATION INDUCTION
     Dosage: 225 IU, UNKNOWN
     Dates: start: 20130205, end: 20130208
  2. PUREGON [Suspect]
     Dosage: 150 IU, UNKNOWN
     Dates: start: 20130208, end: 20130212
  3. OVITRELLE [Concomitant]
     Dosage: 1 DF, ONCE
     Dates: start: 20130213, end: 20130213
  4. CETROTIDE [Concomitant]
     Dosage: UNK
     Route: 058
     Dates: start: 20130210, end: 20130212

REACTIONS (5)
  - Ovarian hyperstimulation syndrome [Unknown]
  - Uterine pain [Unknown]
  - Ovarian enlargement [Unknown]
  - Abdominal pain [Unknown]
  - Maternal exposure before pregnancy [Unknown]
